FAERS Safety Report 6495602-5 (Version None)
Quarter: 2009Q4

REPORT INFORMATION
  Report Type: 
  Country: None (occurrence: None)
  Receive Date: 20091214
  Receipt Date: 20090722
  Transmission Date: 20100525
  Serious: No
  Sender: FDA-Public Use
  Company Number: US-BRISTOL-MYERS SQUIBB COMPANY-14711352

PATIENT
  Age: 39 Year
  Sex: Female
  Weight: 82 kg

DRUGS (2)
  1. ABILIFY [Suspect]
     Indication: MENTAL DISORDER
  2. LEXAPRO [Concomitant]

REACTIONS (3)
  - AGGRESSION [None]
  - HALLUCINATION [None]
  - MOOD SWINGS [None]
